FAERS Safety Report 8537163-2 (Version None)
Quarter: 2012Q3

REPORT INFORMATION
  Report Type: 
  Country: None (occurrence: None)
  Receive Date: 20120725
  Receipt Date: 20120713
  Transmission Date: 20120928
  Serious: Yes (Hospitalization, Other)
  Sender: FDA-Public Use
  Company Number: US-CELGENEUS-163-21880-12031378

PATIENT
  Sex: Male

DRUGS (7)
  1. REVLIMID [Suspect]
     Dosage: 10 MILLIGRAM
     Route: 048
     Dates: start: 20090601
  2. IRON [Concomitant]
     Dosage: 60,000 UNITS
     Route: 041
     Dates: start: 20040101
  3. REVLIMID [Suspect]
     Indication: MYELODYSPLASTIC SYNDROME
     Dosage: 10 MILLIGRAM
     Route: 048
     Dates: start: 20081101
  4. PROCRIT [Concomitant]
     Dosage: 60,000 UNITS
     Route: 065
     Dates: start: 20040101
  5. REVLIMID [Suspect]
     Dosage: 10 MILLIGRAM
     Route: 048
     Dates: start: 20100201
  6. REVLIMID [Suspect]
     Dosage: 10 MILLIGRAM
     Route: 048
     Dates: start: 20090801
  7. IRON [Concomitant]
     Indication: IRON DEFICIENCY
     Route: 041

REACTIONS (5)
  - CORONARY ARTERY DISEASE [None]
  - INJECTION SITE HAEMATOMA [None]
  - BRADYCARDIA [None]
  - CONTUSION [None]
  - ANAEMIA [None]
